FAERS Safety Report 7098935-7 (Version None)
Quarter: 2010Q4

REPORT INFORMATION
  Report Type: 
  Country: None (occurrence: None)
  Receive Date: 20101112
  Receipt Date: 20100630
  Transmission Date: 20110411
  Serious: Yes (Other)
  Sender: FDA-Public Use
  Company Number: US-BAYER-201020489NA

PATIENT
  Age: 18 Year
  Sex: Female
  Weight: 73 kg

DRUGS (6)
  1. YASMIN [Suspect]
     Indication: CONTRACEPTION
     Route: 048
     Dates: start: 20070501, end: 20071101
  2. YAZ [Suspect]
     Indication: CONTRACEPTION
     Route: 048
     Dates: start: 20090331, end: 20090601
  3. LEVOTHYROXINE [Concomitant]
     Route: 048
     Dates: start: 20080314, end: 20091020
  4. SULFAMETHOXAZOLE/TMP DS T [Concomitant]
     Dates: start: 20020311, end: 20080501
  5. TUSSIONEX [Concomitant]
     Dates: start: 20090525, end: 20090616
  6. METOCLOPRAMIDE [Concomitant]
     Dosage: TOTAL DAILY DOSE: 10 MG
     Dates: start: 20090526, end: 20090616

REACTIONS (6)
  - ABDOMINAL PAIN LOWER [None]
  - CHEST PAIN [None]
  - CHOLECYSTECTOMY [None]
  - CHOLECYSTITIS CHRONIC [None]
  - DYSPNOEA [None]
  - PYREXIA [None]
